FAERS Safety Report 6512576-9 (Version None)
Quarter: 2009Q4

REPORT INFORMATION
  Report Type: 
  Country: None (occurrence: None)
  Receive Date: 20091222
  Receipt Date: 20091221
  Transmission Date: 20100525
  Serious: Yes (Death)
  Sender: FDA-Public Use
  Company Number: US-GILEAD-2009-0026104

PATIENT
  Sex: Female
  Weight: 75.818 kg

DRUGS (11)
  1. LETAIRIS [Suspect]
     Indication: PULMONARY ARTERIAL HYPERTENSION
     Route: 048
     Dates: start: 20080201
  2. LASIX [Concomitant]
  3. ALDACTONE [Concomitant]
  4. TENORMIN [Concomitant]
  5. PROPYLTHIOURACIL TAB [Concomitant]
  6. MULTI-VITAMIN [Concomitant]
  7. CIPRO [Concomitant]
  8. NEXIUM [Concomitant]
  9. GLUCOSAMINE-CHONDROITIN [Concomitant]
  10. CALCIUM [Concomitant]
  11. MAGNESIUM [Concomitant]

REACTIONS (1)
  - DEATH [None]
